FAERS Safety Report 9785617 (Version 1)
Quarter: 2013Q4

REPORT INFORMATION
  Report Type: Spontaneous
  Country: US (occurrence: None)
  Receive Date: 20131226
  Receipt Date: 20131226
  Transmission Date: 20140711
  Serious: Yes (Disabling)
  Sender: FDA-Public Use
  Company Number: None

PATIENT
  Age: 45 Year
  Sex: Female
  Weight: 77.11 kg

DRUGS (1)
  1. XANAX [Suspect]
     Indication: ANXIETY
     Dosage: 1    THREE TIMES DAILY
     Dates: start: 20130110, end: 20131201

REACTIONS (5)
  - Drug dependence [None]
  - Bedridden [None]
  - Malaise [None]
  - Asthenia [None]
  - Drug withdrawal syndrome [None]
